FAERS Safety Report 9391034 (Version 6)
Quarter: 2014Q1

REPORT INFORMATION
  Report Type: Report from Study
  Country: DE (occurrence: DE)
  Receive Date: 20130709
  Receipt Date: 20140325
  Transmission Date: 20141002
  Serious: Yes (Death, Hospitalization)
  Sender: FDA-Public Use
  Company Number: DE-SANOFI-AVENTIS-2013SA068972

PATIENT
  Age: 76 Year
  Sex: Male
  Weight: 94 kg

DRUGS (8)
  1. JEVTANA [Suspect]
     Indication: HORMONE-REFRACTORY PROSTATE CANCER
     Route: 051
     Dates: start: 20130702, end: 20130702
  2. ALLOPURINOL [Concomitant]
     Route: 048
  3. PREDNISOLONE [Concomitant]
     Route: 048
  4. BICALUTAMIDE [Concomitant]
     Route: 048
  5. LISINOPRIL [Concomitant]
     Route: 048
  6. DIPHENHYDRAMINE [Concomitant]
  7. MARCUMAR [Concomitant]
  8. HYDROCHLOROTHIAZIDE/LISINOPRIL [Concomitant]

REACTIONS (5)
  - Sepsis [Fatal]
  - Acute coronary syndrome [Fatal]
  - Cardiovascular insufficiency [Recovered/Resolved]
  - Nausea [Recovered/Resolved]
  - Abdominal pain [Not Recovered/Not Resolved]
